FAERS Safety Report 7258834-4 (Version None)
Quarter: 2011Q1

REPORT INFORMATION
  Report Type: 
  Country: None (occurrence: None)
  Receive Date: 20110129
  Receipt Date: 20100516
  Transmission Date: 20110831
  Serious: No
  Sender: FDA-Public Use
  Company Number: US-ABBOTT-10P-163-0645226-00

PATIENT
  Age: 40 Year
  Sex: Female

DRUGS (11)
  1. PRISTIQ [Concomitant]
     Indication: PAIN
     Route: 048
  2. METHOTREXATE [Concomitant]
     Indication: SYSTEMIC LUPUS ERYTHEMATOSUS
  3. PREMARIN [Concomitant]
     Indication: HORMONE THERAPY
     Route: 048
  4. METHOTREXATE [Concomitant]
     Indication: RHEUMATOID ARTHRITIS
  5. XANAX [Concomitant]
     Indication: INSOMNIA
  6. SERAQUEL [Concomitant]
     Indication: PRODUCT USED FOR UNKNOWN INDICATION
     Dosage: AT BEDTIME
     Route: 048
  7. PREDNISONE [Concomitant]
     Indication: SYSTEMIC LUPUS ERYTHEMATOSUS
  8. HUMIRA [Suspect]
     Indication: RHEUMATOID ARTHRITIS
     Dates: start: 20100508
  9. PRISTIQ [Concomitant]
     Indication: DEPRESSION
  10. XANAX [Concomitant]
     Indication: ANXIETY
     Dosage: BID AND TWO AT BEDTIME
     Route: 048
  11. PREDNISONE [Concomitant]
     Indication: RHEUMATOID ARTHRITIS
     Route: 048

REACTIONS (5)
  - INFLUENZA LIKE ILLNESS [None]
  - PAIN [None]
  - FATIGUE [None]
  - MALAISE [None]
  - COUGH [None]
